FAERS Safety Report 9364314 (Version 1)
Quarter: 2013Q2

REPORT INFORMATION
  Report Type: Other
  Country: GB (occurrence: GB)
  Receive Date: 20130624
  Receipt Date: 20130624
  Transmission Date: 20140414
  Serious: Yes (Other)
  Sender: FDA-Public Use
  Company Number: GB-WATSON-2013-10728

PATIENT
  Age: 62 Year
  Sex: Female

DRUGS (1)
  1. SIMVASTATIN (UNKNOWN) [Suspect]
     Indication: BLOOD CHOLESTEROL
     Dosage: 40MG
     Route: 048
     Dates: start: 20080709

REACTIONS (2)
  - Alopecia totalis [Recovering/Resolving]
  - Alopecia areata [Recovering/Resolving]
